FAERS Safety Report 6038890-1 (Version None)
Quarter: 2009Q1

REPORT INFORMATION
  Report Type: 
  Country: None (occurrence: None)
  Receive Date: 20090115
  Receipt Date: 20070820
  Transmission Date: 20090719
  Serious: No
  Sender: FDA-Public Use
  Company Number: US-ABBOTT-08P-163-0468438-00

PATIENT

DRUGS (1)
  1. ADVICOR [Suspect]
     Indication: DRUG USE FOR UNKNOWN INDICATION
     Dates: start: 20070718, end: 20070728

REACTIONS (1)
  - ADVERSE DRUG REACTION [None]
